FAERS Safety Report 10046695 (Version 1)
Quarter: 2014Q1

REPORT INFORMATION
  Report Type: Spontaneous
  Country: US (occurrence: US)
  Receive Date: 20140331
  Receipt Date: 20140331
  Transmission Date: 20141002
  Serious: Yes (Hospitalization)
  Sender: FDA-Public Use
  Company Number: US-BRISTOL-MYERS SQUIBB COMPANY-20547709

PATIENT
  Age: 73 Year
  Sex: Female

DRUGS (1)
  1. ONGLYZA TABS [Suspect]

REACTIONS (3)
  - Pneumonia [Unknown]
  - Dysphagia [Unknown]
  - Drug administration error [Unknown]
